FAERS Safety Report 6038967-0 (Version None)
Quarter: 2009Q1

REPORT INFORMATION
  Report Type: 
  Country: None (occurrence: None)
  Receive Date: 20090115
  Receipt Date: 20090113
  Transmission Date: 20090719
  Serious: Yes (Other)
  Sender: FDA-Public Use
  Company Number: JP-BAYER-200910118BYL

PATIENT
  Age: 8 Year
  Sex: Male

DRUGS (1)
  1. CIPROXAN-I.V. [Suspect]
     Indication: DRUG USE FOR UNKNOWN INDICATION
     Route: 041
     Dates: start: 20061101, end: 20061201

REACTIONS (1)
  - PSEUDOMEMBRANOUS COLITIS [None]
